FAERS Safety Report 6386889-8 (Version None)
Quarter: 2009Q4

REPORT INFORMATION
  Report Type: 
  Country: None (occurrence: None)
  Receive Date: 20091001
  Receipt Date: 20091001
  Transmission Date: 20100525
  Serious: Yes (Other)
  Sender: FDA-Public Use
  Company Number: None

PATIENT
  Age: 53 Year
  Sex: Female
  Weight: 60.782 kg

DRUGS (1)
  1. MAGNEVIST [Suspect]
     Indication: NERVOUS SYSTEM DISORDER
     Dosage: 13 CC X 1 IV
     Route: 042
     Dates: start: 20061030

REACTIONS (1)
  - NEPHROGENIC SYSTEMIC FIBROSIS [None]
